FAERS Safety Report 11390612 (Version 1)
Quarter: 2015Q3

REPORT INFORMATION
  Report Type: Spontaneous
  Country: US (occurrence: US)
  Receive Date: 20150818
  Receipt Date: 20150818
  Transmission Date: 20151125
  Serious: No
  Sender: FDA-Public Use
  Company Number: US-ROCHE-1397566

PATIENT
  Sex: Female

DRUGS (3)
  1. SOVALDI [Suspect]
     Active Substance: SOFOSBUVIR
     Indication: CHRONIC HEPATITIS C
     Route: 048
     Dates: start: 20140429
  2. RIBASPHERE [Suspect]
     Active Substance: RIBAVIRIN
     Indication: CHRONIC HEPATITIS C
     Dosage: IN DIVIDED DOSES?THE PATIENT ALSO TOOK RIBAPAK
     Route: 048
     Dates: start: 20140429
  3. PEGASYS [Suspect]
     Active Substance: PEGINTERFERON ALFA-2A
     Indication: CHRONIC HEPATITIS C
     Route: 058
     Dates: start: 20140429

REACTIONS (10)
  - Headache [Unknown]
  - Chills [Unknown]
  - Fatigue [Unknown]
  - Underdose [Unknown]
  - Gastrooesophageal reflux disease [Recovered/Resolved]
  - Discomfort [Unknown]
  - Diarrhoea [Unknown]
  - Exposure via direct contact [Unknown]
  - Dyspnoea [Recovered/Resolved]
  - Abdominal tenderness [Recovered/Resolved]
